FAERS Safety Report 24969764 (Version 1)
Quarter: 2025Q1

REPORT INFORMATION
  Report Type: Spontaneous
  Country: KR (occurrence: KR)
  Receive Date: 20250214
  Receipt Date: 20250214
  Transmission Date: 20250408
  Serious: Yes (Other)
  Sender: ASTELLAS
  Company Number: KR-ASTELLAS-2025-AER-009030

PATIENT
  Age: 70 Year
  Sex: Male

DRUGS (2)
  1. MIRABEGRON [Suspect]
     Active Substance: MIRABEGRON
     Indication: Pollakiuria
     Dosage: ONE TABLET ONCE DAILY AT NIGHT
     Route: 050
  2. MIRABEGRON [Suspect]
     Active Substance: MIRABEGRON
     Indication: Nocturia

REACTIONS (2)
  - Prostate cancer recurrent [Unknown]
  - Urinary bladder haemorrhage [Unknown]
